FAERS Safety Report 13558205 (Version 1)
Quarter: 2017Q2

REPORT INFORMATION
  Report Type: Other
  Country: GB (occurrence: CA)
  Receive Date: 20170517
  Receipt Date: 20170517
  Transmission Date: 20170830
  Serious: Yes (Death, Life-Threatening, Other)
  Sender: FDA-Public Use
  Company Number: CA-INTERNATIONAL MEDICATION SYSTEMS, LIMITED-2020910

PATIENT
  Age: 90 Year
  Sex: Female

DRUGS (2)
  1. LONG-ACTING MORPHINE [Suspect]
     Active Substance: MORPHINE
     Indication: PAIN MANAGEMENT
     Route: 048
  2. HYDROMORPHONE HCL [Suspect]
     Active Substance: HYDROMORPHONE HYDROCHLORIDE
     Route: 048

REACTIONS (6)
  - Transcription medication error [Fatal]
  - Drug administration error [Fatal]
  - Accidental overdose [Fatal]
  - Toxicity to various agents [Fatal]
  - Unresponsive to stimuli [None]
  - Respiratory rate decreased [None]
